FAERS Safety Report 18542745 (Version 7)
Quarter: 2021Q1

REPORT INFORMATION
  Report Type: Report from Study
  Country: None (occurrence: FR)
  Receive Date: 20201125
  Receipt Date: 20210204
  Transmission Date: 20210419
  Serious: Yes (Hospitalization, Other)
  Sender: FDA-Public Use
  Company Number: FR-ABBVIE-20K-056-3658993-00

PATIENT
  Age: 7 Year
  Sex: Male
  Weight: 46.2 kg

DRUGS (6)
  1. HUMIRA [Suspect]
     Active Substance: ADALIMUMAB
     Route: 058
     Dates: start: 20201212, end: 20201212
  2. SOLUPRED [Concomitant]
     Indication: COLITIS ULCERATIVE
     Dates: start: 20200628
  3. HUMIRA [Suspect]
     Active Substance: ADALIMUMAB
     Indication: COLITIS ULCERATIVE
     Route: 058
     Dates: start: 20201103, end: 202011
  4. HUMIRA [Suspect]
     Active Substance: ADALIMUMAB
     Route: 058
     Dates: start: 20201117, end: 20201117
  5. HUMIRA [Suspect]
     Active Substance: ADALIMUMAB
     Route: 058
     Dates: start: 20201205, end: 20201205
  6. HUMIRA [Suspect]
     Active Substance: ADALIMUMAB
     Route: 058
     Dates: start: 202012, end: 20201216

REACTIONS (17)
  - Sinusitis [Recovered/Resolved]
  - Drug specific antibody present [Recovered/Resolved with Sequelae]
  - Wrong technique in product usage process [Recovered/Resolved]
  - Drug level decreased [Not Recovered/Not Resolved]
  - C-reactive protein increased [Recovered/Resolved]
  - Refusal of treatment by patient [Unknown]
  - Diarrhoea [Not Recovered/Not Resolved]
  - Colitis [Recovered/Resolved]
  - Drug ineffective [Unknown]
  - Injection site pain [Unknown]
  - Nasopharyngitis [Recovered/Resolved]
  - Colitis ulcerative [Unknown]
  - Conjunctivitis [Recovered/Resolved]
  - Steroid dependence [Unknown]
  - Wrong technique in product usage process [Unknown]
  - Injection site pain [Recovered/Resolved]
  - Vomiting [Not Recovered/Not Resolved]

NARRATIVE: CASE EVENT DATE: 2020
